FAERS Safety Report 5809332-3 (Version None)
Quarter: 2008Q3

REPORT INFORMATION
  Report Type: 
  Country: None (occurrence: None)
  Receive Date: 20080714
  Receipt Date: 20080630
  Transmission Date: 20090109
  Serious: Yes (Other)
  Sender: FDA-Public Use
  Company Number: PHBS2008GB05048

PATIENT
  Age: 3 Year
  Sex: Male

DRUGS (4)
  1. PILOCARPINE  NITRATE 1% (NVO) [Suspect]
     Indication: INTRAOCULAR PRESSURE TEST
  2. ACETAZOLAMIDE [Concomitant]
     Route: 042
  3. STEROIDS NOS [Concomitant]
  4. TOPICAL HYPOTENSIVE AGENTS [Concomitant]

REACTIONS (6)
  - ANGLE CLOSURE GLAUCOMA [None]
  - CORNEAL DISORDER [None]
  - EYE DISORDER [None]
  - IRIDECTOMY [None]
  - MYDRIASIS [None]
  - SCLERAL DISORDER [None]
